FAERS Safety Report 9392270 (Version 8)
Quarter: 2015Q3

REPORT INFORMATION
  Report Type: Report from Study
  Country: CA (occurrence: CA)
  Receive Date: 20130710
  Receipt Date: 20150910
  Transmission Date: 20151125
  Serious: Yes (Hospitalization, Other)
  Sender: FDA-Public Use
  Company Number: CA-ROCHE-1246695

PATIENT
  Age: 78 Year
  Sex: Female
  Weight: 63.5 kg

DRUGS (21)
  1. DIPHENHYDRAMINE HCL [Concomitant]
     Active Substance: DIPHENHYDRAMINE HYDROCHLORIDE
     Indication: PREMEDICATION
     Route: 048
     Dates: start: 20090904
  2. LOSEC [Concomitant]
     Active Substance: OMEPRAZOLE
     Route: 065
  3. RITUXAN [Suspect]
     Active Substance: RITUXIMAB
     Route: 042
     Dates: start: 20131104
  4. VITAMIN B12 [Concomitant]
     Active Substance: CYANOCOBALAMIN
  5. METHYLPREDNISOLONE. [Concomitant]
     Active Substance: METHYLPREDNISOLONE
     Indication: PREMEDICATION
     Route: 042
     Dates: start: 20090904
  6. AVAPRO [Concomitant]
     Active Substance: IRBESARTAN
  7. ACETAMINOPHEN. [Concomitant]
     Active Substance: ACETAMINOPHEN
  8. OMEGA 3 [Concomitant]
     Active Substance: OMEGA-3 FATTY ACIDS
  9. TIMOLOL OPHTHALMIC [Concomitant]
  10. SPIRIVA [Concomitant]
     Active Substance: TIOTROPIUM BROMIDE MONOHYDRATE
  11. ACETAMINOPHEN. [Concomitant]
     Active Substance: ACETAMINOPHEN
     Indication: PREMEDICATION
     Route: 048
     Dates: start: 20090918
  12. TRAVATAN Z [Concomitant]
     Active Substance: TRAVOPROST
  13. PREDNISONE. [Concomitant]
     Active Substance: PREDNISONE
  14. RITUXAN [Suspect]
     Active Substance: RITUXIMAB
     Indication: RHEUMATOID ARTHRITIS
     Dosage: LAST DOSE OF RITUXIMAB ON 17/JUN/2014.
     Route: 042
     Dates: start: 20090904
  15. ADVIL [Concomitant]
     Active Substance: IBUPROFEN
     Route: 065
  16. ELTROXIN [Concomitant]
     Active Substance: LEVOTHYROXINE
  17. RESTASIS [Concomitant]
     Active Substance: CYCLOSPORINE
  18. ARAVA [Concomitant]
     Active Substance: LEFLUNOMIDE
  19. LIPITOR [Concomitant]
     Active Substance: ATORVASTATIN CALCIUM
  20. VITAMIN C [Concomitant]
     Active Substance: ASCORBIC ACID
  21. HYDROCHLOROTHIAZIDE. [Concomitant]
     Active Substance: HYDROCHLOROTHIAZIDE

REACTIONS (6)
  - Heart rate increased [Unknown]
  - Syncope [Unknown]
  - Joint swelling [Not Recovered/Not Resolved]
  - Blood pressure increased [Unknown]
  - Malaise [Unknown]
  - Clostridium difficile infection [Unknown]

NARRATIVE: CASE EVENT DATE: 20130701
